FAERS Safety Report 5587368-8 (Version None)
Quarter: 2007Q4

REPORT INFORMATION
  Report Type: 
  Country: None (occurrence: None)
  Receive Date: 20071207
  Receipt Date: 20070629
  Transmission Date: 20080405
  Serious: Yes (Other)
  Sender: FDA-Public Use
  Company Number: 2007053336

PATIENT
  Sex: Male
  Weight: 113.6 kg

DRUGS (3)
  1. VIAGRA [Suspect]
     Indication: ERECTILE DYSFUNCTION
     Dosage: (100 MG, AS NECESSARY)
     Dates: start: 20050101
  2. VITAMIN C (VITAMIN C) [Concomitant]
  3. CALCIUM (CALCIUM) [Concomitant]

REACTIONS (2)
  - ERECTION INCREASED [None]
  - VISION BLURRED [None]
